FAERS Safety Report 16015316 (Version 1)
Quarter: 2019Q1

REPORT INFORMATION
  Report Type: Spontaneous
  Country: FR (occurrence: FR)
  Receive Date: 20190228
  Receipt Date: 20190228
  Transmission Date: 20190418
  Serious: Yes (Other)
  Sender: FDA-Public Use
  Company Number: FR-TEVA-2019-FR-1016628

PATIENT
  Age: 96 Year
  Sex: Female
  Weight: 56 kg

DRUGS (4)
  1. CALCIPARINE [Suspect]
     Active Substance: HEPARIN CALCIUM
     Dosage: .4 MBQ DAILY;
     Route: 058
     Dates: start: 20150211
  2. CEFTRIAXONE BASE [Suspect]
     Active Substance: CEFTRIAXONE
     Indication: INFECTION
     Dosage: 1 GRAM DAILY;
     Route: 042
     Dates: start: 20150216, end: 20150219
  3. ALLOPURINOL. [Suspect]
     Active Substance: ALLOPURINOL
     Dosage: 100 MILLIGRAM DAILY;
     Route: 048
     Dates: start: 20150216, end: 20150219
  4. FLAGYL [Suspect]
     Active Substance: METRONIDAZOLE\METRONIDAZOLE HYDROCHLORIDE
     Indication: INFECTION
     Dosage: 1500 MILLIGRAM DAILY;
     Route: 048
     Dates: start: 20150216, end: 20150219

REACTIONS (3)
  - Urticaria [Unknown]
  - Cholestasis [Unknown]
  - Hepatocellular injury [Unknown]

NARRATIVE: CASE EVENT DATE: 20150219
